FAERS Safety Report 9898953 (Version 1)
Quarter: 2014Q1

REPORT INFORMATION
  Report Type: Spontaneous
  Country: US (occurrence: US)
  Receive Date: 20140214
  Receipt Date: 20140214
  Transmission Date: 20141002
  Serious: Yes (Hospitalization)
  Sender: FDA-Public Use
  Company Number: US-GLAXOSMITHKLINE-A1060282A

PATIENT
  Sex: Male

DRUGS (9)
  1. ADVAIR [Suspect]
     Indication: ASTHMA
     Dosage: 1PUFF TWICE PER DAY
     Route: 055
     Dates: start: 2011
  2. TRAMADOL [Concomitant]
  3. CYCLOBENZAPRINE [Concomitant]
  4. OMEPRAZOLE [Concomitant]
  5. NABUMETONE [Concomitant]
  6. METFORMIN [Concomitant]
  7. GLIPIZIDE [Concomitant]
  8. ATORVASTATIN [Concomitant]
  9. SYMBICORT [Concomitant]
     Indication: ASTHMA

REACTIONS (15)
  - Pneumonia [Unknown]
  - Thymoma malignant [Unknown]
  - Insomnia [Unknown]
  - Lung disorder [Unknown]
  - Dyspnoea [Recovering/Resolving]
  - Muscle twitching [Recovering/Resolving]
  - Yawning [Recovering/Resolving]
  - Poor quality sleep [Recovering/Resolving]
  - Muscle twitching [Recovering/Resolving]
  - Muscle spasms [Recovering/Resolving]
  - Thymus disorder [Unknown]
  - Fall [Unknown]
  - Back injury [Unknown]
  - Joint injury [Unknown]
  - Tension [Unknown]
